FAERS Safety Report 4592271-6 (Version None)
Quarter: 2005Q1

REPORT INFORMATION
  Report Type: 
  Country: None (occurrence: None)
  Receive Date: 20050228
  Receipt Date: 20041109
  Transmission Date: 20050727
  Serious: No
  Sender: FDA-Public Use
  Company Number: US-BRISTOL-MYERS SQUIBB COMPANY-12762274

PATIENT
  Age: 11 Year
  Sex: Male
  Weight: 49 kg

DRUGS (2)
  1. ABILIFY [Suspect]
     Indication: BIPOLAR DISORDER
     Route: 048
     Dates: start: 20041001
  2. RITALIN [Concomitant]

REACTIONS (3)
  - ANOREXIA [None]
  - CONSTIPATION [None]
  - WEIGHT DECREASED [None]
